FAERS Safety Report 17104981 (Version 2)
Quarter: 2019Q4

REPORT INFORMATION
  Report Type: Report from Study
  Country: US (occurrence: US)
  Receive Date: 20191203
  Receipt Date: 20191219
  Transmission Date: 20200122
  Serious: Yes (Death)
  Sender: FDA-Public Use
  Company Number: US-ROCHE-2483752

PATIENT
  Sex: Male

DRUGS (3)
  1. RITUXAN [Suspect]
     Active Substance: RITUXIMAB
     Indication: NON-HODGKIN^S LYMPHOMA
     Dosage: 50 ML VIAL AND INFUSE 700 MG INTRAVENOUSLY EVERY 2 MONTH(S)
     Route: 042
  2. RITUXAN [Suspect]
     Active Substance: RITUXIMAB
     Route: 042
     Dates: start: 20180716
  3. RITUXAN [Suspect]
     Active Substance: RITUXIMAB
     Dosage: VIAL 10 ML
     Route: 042

REACTIONS (3)
  - Sepsis [Fatal]
  - Pneumonia [Fatal]
  - Hypoxia [Fatal]
